FAERS Safety Report 9492009 (Version 1)
Quarter: 2013Q3

REPORT INFORMATION
  Report Type: Spontaneous
  Country: US (occurrence: US)
  Receive Date: 20130830
  Receipt Date: 20130830
  Transmission Date: 20140515
  Serious: Yes (Other)
  Sender: FDA-Public Use
  Company Number: US-SANOFI-AVENTIS-2013SA085676

PATIENT
  Sex: Female

DRUGS (2)
  1. LANTUS SOLOSTAR [Suspect]
     Dosage: DOSE:10 UNIT(S)
     Route: 065
  2. SOLOSTAR [Concomitant]

REACTIONS (4)
  - Cataract [Unknown]
  - Visual acuity reduced [Unknown]
  - Blindness unilateral [Unknown]
  - Renal cancer [Unknown]
